FAERS Safety Report 5887475-6 (Version None)
Quarter: 2008Q3

REPORT INFORMATION
  Report Type: 
  Country: None (occurrence: None)
  Receive Date: 20080918
  Receipt Date: 20080910
  Transmission Date: 20090109
  Serious: Yes (Other)
  Sender: FDA-Public Use
  Company Number: US-BAYER-200830853NA

PATIENT
  Age: 50 Year
  Sex: Male

DRUGS (5)
  1. AVELOX [Suspect]
     Indication: SKIN INFECTION
     Dosage: TOTAL DAILY DOSE: 400 MG  UNIT DOSE: 400 MG
     Route: 048
     Dates: start: 20080714, end: 20080714
  2. AVELOX [Suspect]
     Dosage: TOTAL DAILY DOSE: 400 MG  UNIT DOSE: 400 MG
     Route: 048
     Dates: start: 20080728, end: 20080728
  3. AVELOX [Suspect]
     Dates: start: 20060101
  4. DILANTIN [Concomitant]
     Dosage: TOTAL DAILY DOSE: 300 MG
  5. ASPIRIN [Concomitant]
     Dosage: TOTAL DAILY DOSE: 81 MG

REACTIONS (7)
  - ANAPHYLACTIC REACTION [None]
  - DYSPHAGIA [None]
  - DYSPNOEA [None]
  - HYPERSENSITIVITY [None]
  - HYPOTENSION [None]
  - PRURITUS [None]
  - RASH GENERALISED [None]
